FAERS Safety Report 12647091 (Version 1)
Quarter: 2016Q3

REPORT INFORMATION
  Report Type: Other
  Country: ES (occurrence: ES)
  Receive Date: 20160812
  Receipt Date: 20160812
  Transmission Date: 20161109
  Serious: Yes (Other)
  Sender: FDA-Public Use
  Company Number: ES-LUPIN PHARMACEUTICALS INC.-2016-03490

PATIENT
  Age: 37 Year
  Sex: Female

DRUGS (17)
  1. LAMOTRIGINE. [Suspect]
     Active Substance: LAMOTRIGINE
     Dosage: 200 MG
     Route: 065
     Dates: start: 201312, end: 201405
  2. ASENAPINE [Concomitant]
     Active Substance: ASENAPINE
     Indication: BIPOLAR DISORDER
     Dosage: 5 MG
     Route: 065
     Dates: start: 201208, end: 201212
  3. RISPERIDONE. [Suspect]
     Active Substance: RISPERIDONE
     Indication: BIPOLAR DISORDER
  4. LAMOTRIGINE. [Suspect]
     Active Substance: LAMOTRIGINE
     Indication: MANIA
     Dosage: 100 MG
     Route: 065
  5. QUETIAPINE. [Concomitant]
     Active Substance: QUETIAPINE
     Dosage: 100 MG AT BEDTIME
     Route: 065
     Dates: start: 201212
  6. LAMOTRIGINE. [Suspect]
     Active Substance: LAMOTRIGINE
     Indication: BIPOLAR DISORDER
     Dosage: INCREASING DOSES UP TO 200 MG
     Route: 065
     Dates: start: 201207
  7. LORMETAZEPAM [Concomitant]
     Active Substance: LORMETAZEPAM
     Indication: INSOMNIA
     Dosage: 2 MG AT NIGHT
     Route: 065
     Dates: start: 201206
  8. CLORDIAZEPOXIDE [Concomitant]
     Indication: BIPOLAR DISORDER
  9. OLANZAPINE. [Suspect]
     Active Substance: OLANZAPINE
     Indication: MANIA
     Dosage: 5 MG
     Route: 065
     Dates: start: 201203, end: 201204
  10. OLANZAPINE. [Suspect]
     Active Substance: OLANZAPINE
     Indication: BIPOLAR DISORDER
  11. RISPERIDONE. [Suspect]
     Active Substance: RISPERIDONE
     Indication: MANIA
     Route: 065
     Dates: start: 201203, end: 201205
  12. LITHIUM CARBONATE. [Concomitant]
     Active Substance: LITHIUM CARBONATE
     Indication: MANIA
     Dosage: 1000 MG
     Route: 065
     Dates: start: 201203, end: 201205
  13. CLORDIAZEPOXIDE [Concomitant]
     Indication: MANIA
     Dosage: 5 MG
     Route: 065
     Dates: start: 201203, end: 201204
  14. QUETIAPINE. [Concomitant]
     Active Substance: QUETIAPINE
     Dosage: 200 MG
     Route: 065
     Dates: start: 201306, end: 201312
  15. LITHIUM CARBONATE. [Concomitant]
     Active Substance: LITHIUM CARBONATE
     Indication: BIPOLAR DISORDER
     Dosage: 800 MG
     Route: 065
     Dates: start: 201205, end: 201207
  16. ASENAPINE [Concomitant]
     Active Substance: ASENAPINE
     Indication: MANIA
     Dosage: 10 MG
     Route: 065
     Dates: start: 201302
  17. QUETIAPINE. [Concomitant]
     Active Substance: QUETIAPINE
     Indication: INSOMNIA
     Dosage: 100 MG AT BEDTIME
     Route: 065
     Dates: start: 201208

REACTIONS (4)
  - Somnolence [Unknown]
  - Galactorrhoea [Unknown]
  - Fall [Unknown]
  - Cataplexy [Recovered/Resolved]

NARRATIVE: CASE EVENT DATE: 201204
